FAERS Safety Report 15238988 (Version 1)
Quarter: 2018Q3

REPORT INFORMATION
  Report Type: Spontaneous
  Country: US (occurrence: US)
  Receive Date: 20180803
  Receipt Date: 20180803
  Transmission Date: 20181010
  Serious: Yes (Other)
  Sender: FDA-Public Use
  Company Number: US-SA-2018SA172516

PATIENT
  Age: 64 Year
  Sex: Male

DRUGS (1)
  1. NICOTINE. [Suspect]
     Active Substance: NICOTINE
     Indication: SMOKING CESSATION THERAPY

REACTIONS (6)
  - Nightmare [Unknown]
  - Suicidal ideation [Unknown]
  - Application site pain [Unknown]
  - Malaise [Unknown]
  - Application site erythema [Unknown]
  - Overdose [Unknown]
